FAERS Safety Report 16412255 (Version 1)
Quarter: 2019Q2

REPORT INFORMATION
  Report Type: Spontaneous
  Country: BR (occurrence: BR)
  Receive Date: 20190610
  Receipt Date: 20190610
  Transmission Date: 20190711
  Serious: Yes (Death)
  Sender: FDA-Public Use
  Company Number: BR-ALLERGAN-1915533US

PATIENT
  Sex: Female

DRUGS (1)
  1. ATROPINA 1% [Suspect]
     Active Substance: ATROPINE
     Indication: SALIVARY HYPERSECRETION
     Dosage: 2 GTT, QD
     Route: 048

REACTIONS (2)
  - Guillain-Barre syndrome [Fatal]
  - Off label use [Unknown]
